FAERS Safety Report 10050341 (Version 1)
Quarter: 2014Q2

REPORT INFORMATION
  Report Type: Spontaneous
  Country: US (occurrence: US)
  Receive Date: 20140401
  Receipt Date: 20140401
  Transmission Date: 20141212
  Serious: Yes (Hospitalization, Other)
  Sender: FDA-Public Use
  Company Number: US-BAYER-2014-042687

PATIENT
  Age: 89 Year
  Sex: Male

DRUGS (3)
  1. ACETYLSALICYLIC ACID({=100 MG) [Suspect]
     Dosage: DAILY
  2. NORVASC [Concomitant]
     Dosage: DAILY
  3. GOLYTELY [Concomitant]
     Indication: BOWEL PREPARATION

REACTIONS (4)
  - Lower gastrointestinal haemorrhage [Recovering/Resolving]
  - Large intestinal ulcer [None]
  - Diarrhoea haemorrhagic [Recovering/Resolving]
  - Haemoglobin decreased [None]
